FAERS Safety Report 5016638-7 (Version None)
Quarter: 2006Q2

REPORT INFORMATION
  Report Type: 
  Country: None (occurrence: None)
  Receive Date: 20060419
  Receipt Date: 20051209
  Transmission Date: 20061013
  Serious: No
  Sender: FDA-Public Use
  Company Number: USA050495399

PATIENT
  Age: 79 Year
  Sex: Female

DRUGS (4)
  1. PEMETREXED(PEMETREXED) VIAL [Suspect]
     Indication: LUNG ADENOCARCINOMA
     Dates: start: 20050224
  2. FOLIC ACID [Concomitant]
  3. VITAMIN B12 [Concomitant]
  4. DEXAMETHASONE [Concomitant]

REACTIONS (2)
  - COORDINATION ABNORMAL [None]
  - DIZZINESS [None]
